FAERS Safety Report 6375340-X (Version None)
Quarter: 2009Q3

REPORT INFORMATION
  Report Type: 
  Country: None (occurrence: None)
  Receive Date: 20090924
  Receipt Date: 20090922
  Transmission Date: 20100115
  Serious: Yes (Hospitalization)
  Sender: FDA-Public Use
  Company Number: B0594819A

PATIENT
  Sex: Male
  Weight: 32 kg

DRUGS (5)
  1. ZIDOVUDINE [Suspect]
     Indication: HIV INFECTION
     Dosage: 300MG TWICE PER DAY
     Route: 065
  2. LAMIVUDINE [Suspect]
     Indication: HIV INFECTION
     Dosage: 300MG PER DAY
  3. ABACAVIR [Suspect]
     Indication: HIV INFECTION
     Dosage: 600MG PER DAY
     Route: 065
  4. COTRIM [Suspect]
     Indication: DRUG USE FOR UNKNOWN INDICATION
     Dosage: 960MG PER DAY
     Route: 065
  5. MULTI-VITAMIN [Concomitant]
     Dosage: 1TAB PER DAY
     Route: 065

REACTIONS (9)
  - ANAEMIA [None]
  - CARDIAC FAILURE [None]
  - CHILLS [None]
  - DYSPNOEA [None]
  - FATIGUE [None]
  - NEUTROPENIA [None]
  - PALPITATIONS [None]
  - PYREXIA [None]
  - TRANSFUSION REACTION [None]
